FAERS Safety Report 23128812 (Version 3)
Quarter: 2024Q1

REPORT INFORMATION
  Report Type: Spontaneous
  Country: US (occurrence: US)
  Receive Date: 20231031
  Receipt Date: 20240206
  Transmission Date: 20240410
  Serious: Yes (Other)
  Sender: FDA-Public Use
  Company Number: US-SA-SAC20231027001607

PATIENT
  Age: 78 Year
  Sex: Female

DRUGS (1)
  1. DUPIXENT [Suspect]
     Active Substance: DUPILUMAB
     Indication: Dermatitis atopic
     Dosage: 300 MG, QOW
     Route: 058
     Dates: start: 20180618, end: 202309

REACTIONS (5)
  - Pneumonia [Unknown]
  - Cough [Unknown]
  - Productive cough [Unknown]
  - Condition aggravated [Unknown]
  - Lung carcinoma cell type unspecified stage IV [Unknown]

NARRATIVE: CASE EVENT DATE: 20230101
